FAERS Safety Report 4385693-X (Version None)
Quarter: 2004Q2

REPORT INFORMATION
  Report Type: 
  Country: None (occurrence: None)
  Receive Date: 20040624
  Receipt Date: 20040624
  Transmission Date: 20050107
  Serious: Yes (Hospitalization)
  Sender: FDA-Public Use
  Company Number: None

PATIENT
  Sex: Male
  Weight: 114 kg

DRUGS (7)
  1. ZIPRASIDONE 80 MG [Suspect]
     Indication: SCHIZOAFFECTIVE DISORDER
     Dosage: 160 MG AT BEDTIME ORAL
     Route: 048
     Dates: start: 20030826, end: 20040610
  2. ZIPRASIDONE 40 MG [Suspect]
     Indication: SCHIZOAFFECTIVE DISORDER
     Dosage: 40 MG AT BEDTIME ORAL
     Route: 048
     Dates: start: 20030826, end: 20040610
  3. IBUPROFEN [Concomitant]
  4. DIAZEPAM [Concomitant]
  5. CLONAZEPAM [Concomitant]
  6. VENLAFAXINE [Concomitant]
  7. BUPROPION HCL [Concomitant]

REACTIONS (1)
  - DIZZINESS EXERTIONAL [None]
